FAERS Safety Report 4862609-0 (Version None)
Quarter: 2005Q4

REPORT INFORMATION
  Report Type: 
  Country: None (occurrence: None)
  Receive Date: 20051221
  Receipt Date: 20051213
  Transmission Date: 20060501
  Serious: Yes (Hospitalization)
  Sender: FDA-Public Use
  Company Number: FR-ROCHE-428361

PATIENT
  Age: 98 Year
  Sex: Female
  Weight: 60 kg

DRUGS (2)
  1. ROCEPHIN [Suspect]
     Indication: PYELONEPHRITIS
     Dosage: FORM REPORTED AS INJECTABLE AMPULE.
     Route: 030
     Dates: start: 20050916, end: 20050918
  2. ROCEPHIN [Suspect]
     Dosage: FORM REPORTED AS INJECTABLE AMPULE.
     Route: 030
     Dates: start: 20050919, end: 20050920

REACTIONS (3)
  - AGITATION [None]
  - CONFUSIONAL STATE [None]
  - DISORIENTATION [None]
